FAERS Safety Report 12598014 (Version 10)
Quarter: 2018Q3

REPORT INFORMATION
  Report Type: Report from Study
  Country: DE (occurrence: DE)
  Receive Date: 20160727
  Receipt Date: 20180817
  Transmission Date: 20181010
  Serious: Yes (Hospitalization, Other)
  Sender: FDA-Public Use
  Company Number: PHHY2016DE102101

PATIENT
  Age: 75 Year
  Sex: Male

DRUGS (30)
  1. TRAMETINIB [Suspect]
     Active Substance: TRAMETINIB
     Dosage: UNK
     Route: 048
     Dates: start: 20160524, end: 20160529
  2. TRAMETINIB [Suspect]
     Active Substance: TRAMETINIB
     Dosage: UNK
     Route: 048
     Dates: start: 20160611, end: 20160620
  3. TRAMETINIB [Suspect]
     Active Substance: TRAMETINIB
     Dosage: 2 MG, QD
     Route: 048
     Dates: start: 20160621, end: 20160701
  4. TORASEMIDE [Concomitant]
     Active Substance: TORSEMIDE
     Indication: HYPERTENSION
     Dosage: 5 MG, QD
     Route: 048
     Dates: start: 2014
  5. PHENPROCOUMON [Concomitant]
     Active Substance: PHENPROCOUMON
     Indication: ATRIAL FIBRILLATION
     Dosage: 1 OT, QD
     Route: 048
     Dates: start: 2012
  6. VEMURAFENIB. [Concomitant]
     Active Substance: VEMURAFENIB
     Dosage: 240 MG, UNK (6 DAILY)
     Route: 048
     Dates: start: 201609, end: 20161025
  7. TRAMETINIB [Suspect]
     Active Substance: TRAMETINIB
     Dosage: 2 MG, QD
     Route: 048
     Dates: start: 20160530, end: 20160610
  8. RAMIPRIL. [Concomitant]
     Active Substance: RAMIPRIL
     Indication: HYPERTENSION
     Dosage: 5 MG, BID
     Route: 048
     Dates: start: 2013
  9. CANDESARTAN. [Concomitant]
     Active Substance: CANDESARTAN
     Indication: HYPERTENSION
     Dosage: 8 MG, QD
     Route: 048
     Dates: start: 20160525
  10. COBIMETINIB. [Concomitant]
     Active Substance: COBIMETINIB
     Dosage: 20 MG, QD
     Route: 048
     Dates: start: 20170210, end: 20170301
  11. TAFINLAR [Suspect]
     Active Substance: DABRAFENIB MESYLATE
     Indication: METASTATIC MALIGNANT MELANOMA
     Dosage: 150 MG, BID
     Route: 048
     Dates: start: 20160408, end: 20160523
  12. TAFINLAR [Suspect]
     Active Substance: DABRAFENIB MESYLATE
     Dosage: UNK
     Route: 048
     Dates: start: 20160611, end: 20160620
  13. COBIMETINIB. [Concomitant]
     Active Substance: COBIMETINIB
     Dosage: 20 MG, QD
     Route: 048
     Dates: start: 20161026, end: 20170115
  14. AMLODIPINE [Concomitant]
     Active Substance: AMLODIPINE BESYLATE
     Indication: ATRIAL FIBRILLATION
     Dosage: 5 MG, BID
     Route: 048
     Dates: start: 2012
  15. AMLODIPINE [Concomitant]
     Active Substance: AMLODIPINE BESYLATE
     Indication: HYPERTENSION
  16. COBIMETINIB. [Concomitant]
     Active Substance: COBIMETINIB
     Indication: MALIGNANT MELANOMA
     Dosage: 60 MG, QD
     Route: 048
     Dates: start: 20160725, end: 201609
  17. COBIMETINIB. [Concomitant]
     Active Substance: COBIMETINIB
     Dosage: 40 MG, BID
     Route: 048
     Dates: start: 201609, end: 20161025
  18. TRAMETINIB [Suspect]
     Active Substance: TRAMETINIB
     Dosage: 2 MG, QD
     Route: 048
     Dates: start: 20160621, end: 20160622
  19. ALLOPURINOL. [Concomitant]
     Active Substance: ALLOPURINOL
     Indication: HYPERURICAEMIA
     Dosage: 150 MG, QD
     Route: 048
     Dates: start: 2012
  20. PANTOPRAZOLE [Concomitant]
     Active Substance: PANTOPRAZOLE
     Indication: PRODUCT USED FOR UNKNOWN INDICATION
     Dosage: 40 MG, QD
     Route: 048
     Dates: start: 2015
  21. SIMVASTATIN. [Concomitant]
     Active Substance: SIMVASTATIN
     Indication: HYPERCHOLESTEROLAEMIA
     Dosage: 20 MG, QD
     Route: 048
     Dates: start: 2012
  22. VEMURAFENIB. [Concomitant]
     Active Substance: VEMURAFENIB
     Dosage: 240 MG, QD
     Route: 048
     Dates: start: 20170210, end: 20170301
  23. TAFINLAR [Suspect]
     Active Substance: DABRAFENIB MESYLATE
     Dosage: 75 MG, BID
     Route: 048
     Dates: start: 20160623, end: 20160701
  24. TRAMETINIB [Suspect]
     Active Substance: TRAMETINIB
     Indication: METASTATIC MALIGNANT MELANOMA
     Dosage: 2 MG, QD
     Route: 048
     Dates: start: 20160408, end: 20160523
  25. CARVEDILOL. [Concomitant]
     Active Substance: CARVEDILOL
     Indication: HYPERTENSION
     Dosage: 12.5 MG, QD
     Route: 048
     Dates: start: 2012
  26. VEMURAFENIB. [Concomitant]
     Active Substance: VEMURAFENIB
     Dosage: 960 MG, BID
     Route: 048
     Dates: start: 20161025, end: 20170115
  27. TAFINLAR [Suspect]
     Active Substance: DABRAFENIB MESYLATE
     Dosage: UNK
     Route: 048
     Dates: start: 20160524, end: 20160529
  28. TAFINLAR [Suspect]
     Active Substance: DABRAFENIB MESYLATE
     Dosage: 100 MG, BID
     Route: 048
     Dates: start: 20160621, end: 20160622
  29. VEMURAFENIB. [Concomitant]
     Active Substance: VEMURAFENIB
     Indication: MALIGNANT MELANOMA
     Dosage: 960 MG, BID
     Route: 048
     Dates: start: 20160725, end: 201609
  30. NIVOLUMAB [Suspect]
     Active Substance: NIVOLUMAB
     Indication: MALIGNANT MELANOMA
     Dosage: 272.2 MG, UNK (ONCE IN TWO WEEKS)
     Route: 042
     Dates: start: 20170309

REACTIONS (7)
  - Autoimmune colitis [Recovered/Resolved]
  - Pyrexia [Recovered/Resolved]
  - Pyrexia [Recovered/Resolved]
  - Pyrexia [Not Recovered/Not Resolved]
  - Pneumonia [Recovered/Resolved]
  - Diabetes mellitus [Not Recovered/Not Resolved]
  - General physical health deterioration [Recovered/Resolved]

NARRATIVE: CASE EVENT DATE: 20160414
